FAERS Safety Report 24712552 (Version 1)
Quarter: 2024Q4

REPORT INFORMATION
  Report Type: Spontaneous
  Country: US (occurrence: US)
  Receive Date: 20241209
  Receipt Date: 20241209
  Transmission Date: 20250115
  Serious: No
  Sender: ABBVIE
  Company Number: US-ABBVIE-6035821

PATIENT
  Sex: Female

DRUGS (1)
  1. UPADACITINIB [Suspect]
     Active Substance: UPADACITINIB
     Indication: Dermatitis atopic
     Route: 048
     Dates: start: 2024

REACTIONS (5)
  - Alopecia [Unknown]
  - Urticaria [Unknown]
  - Pruritus [Recovered/Resolved]
  - Folliculitis [Unknown]
  - Rash papular [Unknown]

NARRATIVE: CASE EVENT DATE: 20240101
